FAERS Safety Report 10166424 (Version 1)
Quarter: 2014Q2

REPORT INFORMATION
  Report Type: Spontaneous
  Country: US (occurrence: None)
  Receive Date: 20140509
  Receipt Date: 20140509
  Transmission Date: 20141212
  Serious: Yes (Life-Threatening, Hospitalization)
  Sender: FDA-Public Use
  Company Number: None

PATIENT
  Age: 72 Year
  Sex: Male
  Weight: 94.8 kg

DRUGS (12)
  1. CETUXIMAB [Suspect]
     Indication: RECTAL CANCER
     Dosage: 876MG, (400MG/M2), Q 2 WEEKS, INTRAVENOUS
     Route: 042
     Dates: start: 20140303
  2. DEXAMETHASONE (DECADRON) 4 MG TABLET [Concomitant]
  3. FUROSEMIDE (LASIX) 20 MG TABLET [Concomitant]
  4. GABAPENTIN (NEURONTIN) 600 MG TABLET [Concomitant]
  5. HYDROCODONE-ACETAMINOPHEN (NORCO) 5-325 MG TABLET? [Concomitant]
  6. LORAZEPAM (ATIVAN) 0.5 MG TABLET [Concomitant]
  7. OLOPATADINE (PATANOL) 0.1 % OPHTHALMIC SOLUTION [Concomitant]
  8. OMEPRAZOLE (PRILOSEC) 20 MG CAPSULE [Concomitant]
  9. OXYBUTYNIN (DITROPAN XL) 10 MG TABLET [Concomitant]
  10. OXYCODONE (OXY-IR) 5 MG CAPSULE [Concomitant]
  11. OXYCODONE (OXYCONTIN) 20 MG TABLET [Concomitant]
  12. TAMSULOSIN (FLOMAX) 0.4 MG CP24 [Concomitant]

REACTIONS (3)
  - Infusion related reaction [None]
  - Acute myocardial infarction [None]
  - Blood pressure increased [None]
